FAERS Safety Report 6304540-X (Version None)
Quarter: 2009Q3

REPORT INFORMATION
  Report Type: 
  Country: None (occurrence: None)
  Receive Date: 20090811
  Receipt Date: 20090731
  Transmission Date: 20100115
  Serious: Yes (Other)
  Sender: FDA-Public Use
  Company Number: GB-JNJFOC-20090706856

PATIENT
  Age: 66 Year
  Sex: Male
  Weight: 180 kg

DRUGS (7)
  1. REMICADE [Suspect]
     Indication: RHEUMATOID ARTHRITIS
     Route: 042
  2. METHOTREXATE [Concomitant]
  3. PREDNISOLONE [Concomitant]
  4. CIMETIDINE [Concomitant]
  5. FOLIC ACID [Concomitant]
  6. MS CONTIN [Concomitant]
  7. NYSTATIN [Concomitant]

REACTIONS (1)
  - MALIGNANT PALATE NEOPLASM [None]
